FAERS Safety Report 15140184 (Version 1)
Quarter: 2018Q3

REPORT INFORMATION
  Report Type: Spontaneous
  Country: FR (occurrence: FR)
  Receive Date: 20180713
  Receipt Date: 20180713
  Transmission Date: 20181010
  Serious: Yes (Hospitalization)
  Sender: FDA-Public Use
  Company Number: FR-009507513-1807FRA005527

PATIENT
  Age: 87 Year
  Sex: Female
  Weight: 48 kg

DRUGS (1)
  1. BETAMETHASONE SODIUM PHOSPHATE [Suspect]
     Active Substance: BETAMETHASONE SODIUM PHOSPHATE
     Route: 048
     Dates: start: 201806, end: 201806

REACTIONS (2)
  - Hyperglycaemia [Recovering/Resolving]
  - Diabetes mellitus inadequate control [Recovering/Resolving]

NARRATIVE: CASE EVENT DATE: 20180613
